FAERS Safety Report 8128124-6 (Version None)
Quarter: 2012Q1

REPORT INFORMATION
  Report Type: 
  Country: None (occurrence: None)
  Receive Date: 20120210
  Receipt Date: 20120131
  Transmission Date: 20120608
  Serious: Yes (Other)
  Sender: FDA-Public Use
  Company Number: US-NOVOPROD-344321

PATIENT
  Age: 33 Year
  Sex: Female

DRUGS (2)
  1. NOVOLIN N [Suspect]
     Indication: TYPE 1 DIABETES MELLITUS
     Dosage: 10 U, AT BEDTIME
     Route: 058
  2. NOVOLIN R [Suspect]
     Indication: TYPE 1 DIABETES MELLITUS
     Dosage: 5 U, THREE TIMES A DAY AT MEALS
     Route: 058

REACTIONS (2)
  - PRE-ECLAMPSIA [None]
  - MATERNAL EXPOSURE DURING PREGNANCY [None]
